FAERS Safety Report 7464930-9 (Version None)
Quarter: 2011Q2

REPORT INFORMATION
  Report Type: 
  Country: None (occurrence: None)
  Receive Date: 20110428
  Receipt Date: 20110412
  Transmission Date: 20111010
  Serious: Yes (Other)
  Sender: FDA-Public Use
  Company Number: 2011SP013347

PATIENT
  Age: 69 Year
  Sex: Male

DRUGS (4)
  1. CLARITIN REDITABS [Suspect]
     Indication: OROPHARYNGEAL PAIN
     Dosage: 10 MG, ONCE, PO
     Route: 048
     Dates: start: 20110319
  2. CLARITIN REDITABS [Suspect]
     Indication: SNEEZING
     Dosage: 10 MG, ONCE, PO
     Route: 048
     Dates: start: 20110319
  3. CLARITIN REDITABS [Suspect]
     Indication: LACRIMATION INCREASED
     Dosage: 10 MG, ONCE, PO
     Route: 048
     Dates: start: 20110319
  4. CLARITIN REDITABS [Suspect]
     Indication: BACK PAIN
     Dosage: 10 MG, ONCE, PO
     Route: 048
     Dates: start: 20110319

REACTIONS (24)
  - DYSPHAGIA [None]
  - EAR PAIN [None]
  - EYE IRRITATION [None]
  - SWOLLEN TONGUE [None]
  - EYE PRURITUS [None]
  - DECREASED APPETITE [None]
  - HYPERSENSITIVITY [None]
  - THROAT IRRITATION [None]
  - OROPHARYNGEAL PAIN [None]
  - OEDEMA MOUTH [None]
  - DIZZINESS [None]
  - HEART RATE INCREASED [None]
  - BACK PAIN [None]
  - TINNITUS [None]
  - CONDITION AGGRAVATED [None]
  - INSOMNIA [None]
  - DRUG INEFFECTIVE [None]
  - NASAL CONGESTION [None]
  - HEADACHE [None]
  - HYPOAESTHESIA [None]
  - ABNORMAL DREAMS [None]
  - TRISMUS [None]
  - PRURITUS [None]
  - SOMNOLENCE [None]
